FAERS Safety Report 5796070-9 (Version None)
Quarter: 2008Q2

REPORT INFORMATION
  Report Type: 
  Country: None (occurrence: None)
  Receive Date: 20080626
  Receipt Date: 20080616
  Transmission Date: 20081010
  Serious: Yes (Life-Threatening, Hospitalization)
  Sender: FDA-Public Use
  Company Number: 2008BI001182

PATIENT
  Age: 31 Year
  Sex: Female

DRUGS (1)
  1. AVONEX [Suspect]
     Indication: MULTIPLE SCLEROSIS
     Dosage: 30 UG; QW; IM
     Route: 030
     Dates: start: 20060801

REACTIONS (8)
  - ASTHMA [None]
  - DEPRESSION [None]
  - HYPERTENSION [None]
  - MENTAL DISORDER [None]
  - OPTIC NEURITIS [None]
  - OPTIC NEUROPATHY [None]
  - OVERDOSE [None]
  - TREATMENT NONCOMPLIANCE [None]
